FAERS Safety Report 18944280 (Version 33)
Quarter: 2024Q4

REPORT INFORMATION
  Report Type: Spontaneous
  Country: CA (occurrence: CA)
  Receive Date: 20210226
  Receipt Date: 20241226
  Transmission Date: 20250114
  Serious: Yes (Hospitalization, Other)
  Sender: CELLTRION
  Company Number: CA-CELLTRION INC.-2021CA001528

PATIENT

DRUGS (28)
  1. INFLECTRA [Suspect]
     Active Substance: INFLIXIMAB-DYYB
     Indication: Crohn^s disease
     Dosage: 500 MG (INDUCTION WEEK 0), 0, 2, 6 WEEKS, THEN EVERY 8 WEEKS
     Route: 042
     Dates: start: 20190425
  2. INFLECTRA [Suspect]
     Active Substance: INFLIXIMAB-DYYB
     Dosage: 500 MG, 0, 2, 6 WEEKS, THEN EVERY 8 WEEKS
     Route: 042
     Dates: start: 20190425
  3. INFLECTRA [Suspect]
     Active Substance: INFLIXIMAB-DYYB
     Dosage: 500 MG, (INDUCTION WEEK 2)
     Route: 042
     Dates: start: 20190522
  4. INFLECTRA [Suspect]
     Active Substance: INFLIXIMAB-DYYB
     Dosage: 500 MG (INDUCTION WEEK 6), 0, 2, 6 WEEKS, THEN EVERY 8 WEEKS
     Route: 042
     Dates: start: 20190620
  5. INFLECTRA [Suspect]
     Active Substance: INFLIXIMAB-DYYB
     Dosage: 500 MG, EVERY 8 WEEKS
     Route: 042
  6. INFLECTRA [Suspect]
     Active Substance: INFLIXIMAB-DYYB
     Dosage: 10 MG/KG, RE-LOAD 0, 2, 6 WEEKS THEN EVERY 4 WEEKS. (RELOAD DOSE OF 880MG IN HOSPITAL)
     Route: 042
     Dates: start: 20210211
  7. INFLECTRA [Suspect]
     Active Substance: INFLIXIMAB-DYYB
     Dosage: 10 MG/KG, RE-LOAD 0, 2, 6 WEEKS THEN EVERY 4 WEEKS. (FIRST RELOAD DOSE OF 880MG IN HOSPITAL)
     Route: 042
     Dates: start: 20210401, end: 20210401
  8. INFLECTRA [Suspect]
     Active Substance: INFLIXIMAB-DYYB
     Dosage: 10 MG/KG, RE-LOAD 0, 2, 6 WEEKS THEN EVERY 4 WEEKS. (FIRST RELOAD DOSE OF 880MG IN HOSPITAL)
     Route: 042
     Dates: start: 20210429
  9. INFLECTRA [Suspect]
     Active Substance: INFLIXIMAB-DYYB
     Dosage: 10 MG/KG, (700MG) REINDUCTION AT WEEK 0, 2 AND 6, THEN EVERY 8 WEEKS
     Route: 042
     Dates: start: 20210908, end: 20211230
  10. INFLECTRA [Suspect]
     Active Substance: INFLIXIMAB-DYYB
     Dosage: 10 MG/KG, RE-LOAD 0, 2, 6 WEEKS THEN EVERY 8 WEEKS (RECEIVED 700 MG)
     Route: 042
     Dates: start: 20211019
  11. INFLECTRA [Suspect]
     Active Substance: INFLIXIMAB-DYYB
     Dosage: 10 MG/KG, RE-LOAD 0, 2, 6 WEEKS THEN EVERY 8 WEEKS (RECEIVED 700 MG)
     Route: 042
     Dates: start: 20211102
  12. INFLECTRA [Suspect]
     Active Substance: INFLIXIMAB-DYYB
     Dosage: 700 MG REINDUCTION AT WEEK 0, 2, 6, THEN EVERY 8 WEEKS (PATIENT WAS SUPPOSED TO RECEIVE 10 MG/KG)
     Route: 042
     Dates: start: 20211230
  13. INFLECTRA [Suspect]
     Active Substance: INFLIXIMAB-DYYB
     Dosage: 300 MG, WEEK 0, 2 AND 6, THEN EVERY 8 WEEKS
     Route: 042
     Dates: start: 20241119
  14. CHOLESTYRAMINE [Concomitant]
     Active Substance: CHOLESTYRAMINE
     Dosage: 1 DF, 4 G (GRAMS) POWER PACK QID (4XDAY) IF NEEDED
  15. CODEINE [Concomitant]
     Active Substance: CODEINE
     Dosage: 1 DF, 3X/DAY,15-30 MG
  16. CODEINE [Concomitant]
     Active Substance: CODEINE
     Dosage: 1 DF, 3X/DAY, 15-30 MG AS NEEDED (PRN) (LIQUID)
     Route: 065
  17. CODEINE [Concomitant]
     Active Substance: CODEINE
     Dosage: 2 DF (TABLET), AS NEEDED (2-3 TIMES PER DAY)
  18. CODEINE [Concomitant]
     Active Substance: CODEINE
     Dosage: 1 DF, AS NEEDED, 2 TABLETS 2-3 TIMES PER DAY PRN
  19. DESIPRAMINE [Concomitant]
     Active Substance: DESIPRAMINE
     Dosage: UNK
  20. IMODIUM [Concomitant]
     Active Substance: LOPERAMIDE HYDROCHLORIDE
     Dosage: 6 DF, 1X/DAY (6 TABLETS A DAY)
  21. IMODIUM [Concomitant]
     Active Substance: LOPERAMIDE HYDROCHLORIDE
     Dosage: 1 DF, 1X/DAY,6 TABLETS A DAY
  22. MAGNESIUM [Concomitant]
     Active Substance: MAGNESIUM
     Dosage: UNK
  23. METHOTREXATE [Concomitant]
     Active Substance: METHOTREXATE
     Dosage: 1 DF
  24. METHOTREXATE [Concomitant]
     Active Substance: METHOTREXATE
     Dosage: 1 DF, WEEKLY (UNK DOSE)
     Dates: start: 2018
  25. PANTOPRAZOLE SODIUM [Concomitant]
     Active Substance: PANTOPRAZOLE SODIUM
     Dosage: UNK
  26. POTASSIUM [Concomitant]
     Active Substance: POTASSIUM
     Dosage: 1 DF (UNK DOSE)
  27. PREDNISONE [Concomitant]
     Active Substance: PREDNISONE
     Dosage: 1 DF, WEEKLY, 8 TABLETS, TAPER BY 1 TABLET ONCE A WEEK
     Route: 065
  28. URSODIOL [Concomitant]
     Active Substance: URSODIOL
     Dosage: UNK

REACTIONS (31)
  - Nephrolithiasis [Unknown]
  - Uveitis [Unknown]
  - Electrolyte imbalance [Not Recovered/Not Resolved]
  - Blood potassium decreased [Unknown]
  - Blood magnesium decreased [Unknown]
  - Condition aggravated [Not Recovered/Not Resolved]
  - Weight fluctuation [Unknown]
  - Gastrointestinal disorder [Unknown]
  - Weight decreased [Not Recovered/Not Resolved]
  - Anal fissure [Recovered/Resolved]
  - Cardiac disorder [Unknown]
  - Weight increased [Unknown]
  - Extrasystoles [Not Recovered/Not Resolved]
  - Illness [Unknown]
  - Lethargy [Not Recovered/Not Resolved]
  - Malaise [Unknown]
  - Poor venous access [Unknown]
  - Drug ineffective [Unknown]
  - Arthralgia [Not Recovered/Not Resolved]
  - Blood pressure fluctuation [Unknown]
  - Hypertension [Unknown]
  - Pharyngitis streptococcal [Not Recovered/Not Resolved]
  - Post procedural infection [Unknown]
  - Pyrexia [Not Recovered/Not Resolved]
  - Pain [Unknown]
  - Infusion site extravasation [Unknown]
  - Off label use [Unknown]
  - Off label use [Unknown]
  - Intentional product use issue [Unknown]
  - Inappropriate schedule of product administration [Unknown]
  - Product dose omission issue [Unknown]

NARRATIVE: CASE EVENT DATE: 20210101
